FAERS Safety Report 8840060 (Version 2)
Quarter: 2013Q1

REPORT INFORMATION
  Report Type: Spontaneous
  Country: US (occurrence: None)
  Receive Date: 20121011
  Receipt Date: 20121018
  Transmission Date: 20140127
  Serious: No
  Sender: FDA-Public Use
  Company Number: 1209-518

PATIENT
  Age: 81 Year
  Sex: Female

DRUGS (1)
  1. EYLEA [Suspect]
     Indication: AGE-RELATED MACULAR DEGENERATION
     Dates: start: 20120430

REACTIONS (3)
  - Visual acuity reduced [None]
  - Blindness [None]
  - Retinal depigmentation [None]
